FAERS Safety Report 6747835-8 (Version None)
Quarter: 2010Q2

REPORT INFORMATION
  Report Type: 
  Country: None (occurrence: None)
  Receive Date: 20100528
  Receipt Date: 20100519
  Transmission Date: 20101027
  Serious: Yes (Hospitalization)
  Sender: FDA-Public Use
  Company Number: US-ABBOTT-10P-163-0645703-00

PATIENT
  Sex: Male
  Weight: 69.462 kg

DRUGS (12)
  1. HUMIRA [Suspect]
     Indication: CROHN'S DISEASE
     Dates: start: 20100409, end: 20100409
  2. HUMIRA [Suspect]
     Dates: start: 20100423, end: 20100423
  3. HUMIRA [Suspect]
     Dates: start: 20100507
  4. PREDNISONE TAB [Concomitant]
     Indication: CROHN'S DISEASE
  5. LISINOPRIL [Concomitant]
     Indication: HYPERTENSION
  6. VITAMIN B-12 [Concomitant]
     Indication: PERNICIOUS ANAEMIA
  7. ASPIRIN [Concomitant]
     Indication: EYE HAEMORRHAGE
  8. FOSAMAX [Concomitant]
     Indication: OSTEOPOROSIS
  9. UROXITREL [Concomitant]
     Indication: BENIGN PROSTATIC HYPERPLASIA
  10. VITAMIN D [Concomitant]
     Indication: VITAMIN SUPPLEMENTATION
  11. METRONIDAZOLE [Concomitant]
     Indication: CROHN'S DISEASE
  12. ZOPIDEM [Concomitant]
     Indication: SLEEP DISORDER THERAPY

REACTIONS (5)
  - DECREASED APPETITE [None]
  - DYSPEPSIA [None]
  - INAPPROPRIATE SCHEDULE OF DRUG ADMINISTRATION [None]
  - INTESTINAL OBSTRUCTION [None]
  - PYREXIA [None]
